FAERS Safety Report 14838722 (Version 1)
Quarter: 2018Q2

REPORT INFORMATION
  Report Type: Spontaneous
  Country: US (occurrence: US)
  Receive Date: 20180418
  Receipt Date: 20180418
  Transmission Date: 20180711
  Serious: Yes (Life-Threatening, Other)
  Sender: FDA-Public Use
  Company Number: None

PATIENT
  Age: 48 Year
  Sex: Female
  Weight: 47.25 kg

DRUGS (1)
  1. PACLITAXEL. [Suspect]
     Active Substance: PACLITAXEL
     Indication: COLON CANCER
     Dosage: ?          OTHER FREQUENCY:WEEKLY; INTRAVENOUS (NOT OTHERWISE SPECIFIED)??
     Route: 042
     Dates: start: 20180404

REACTIONS (3)
  - Erythema [None]
  - Dyspnoea [None]
  - Product quality issue [None]

NARRATIVE: CASE EVENT DATE: 20180411
